FAERS Safety Report 4721211-1 (Version None)
Quarter: 2005Q3

REPORT INFORMATION
  Report Type: 
  Country: None (occurrence: None)
  Receive Date: 20050722
  Receipt Date: 20050718
  Transmission Date: 20060218
  Serious: Yes (Hospitalization)
  Sender: FDA-Public Use
  Company Number: 2005CG01265

PATIENT
  Age: 31 Year
  Sex: Female

DRUGS (6)
  1. ZOMIGORO [Suspect]
     Indication: MIGRAINE
     Route: 048
     Dates: end: 20050201
  2. ZOMIGORO [Suspect]
     Dosage: 3 TABLETS TAKEN OVER 2 DAYS
     Route: 048
     Dates: start: 20050524, end: 20050525
  3. JASMINE [Concomitant]
     Indication: ORAL CONTRACEPTION
     Route: 048
     Dates: end: 20050101
  4. DOLIPRANE [Concomitant]
     Dates: start: 20050511
  5. NIFLURIL [Concomitant]
     Dates: start: 20050511
  6. ADVIL [Concomitant]
     Route: 048
     Dates: start: 20050511

REACTIONS (2)
  - COLITIS ULCERATIVE [None]
  - PROCTITIS [None]
